FAERS Safety Report 5754860-2 (Version None)
Quarter: 2008Q2

REPORT INFORMATION
  Report Type: 
  Country: None (occurrence: None)
  Receive Date: 20080527
  Receipt Date: 20080519
  Transmission Date: 20081010
  Serious: Yes (Other)
  Sender: FDA-Public Use
  Company Number: SPV1-2008-01001

PATIENT
  Age: 42 Year
  Sex: Female
  Weight: 82.5 kg

DRUGS (5)
  1. LIALDA [Suspect]
     Indication: PROCTITIS ULCERATIVE
     Dosage: 2.4 G, 2X/DAY:BID,
     Dates: start: 20080416, end: 20080422
  2. VICODIN [Concomitant]
  3. ELAVIL /00002202/ (AMITRIPTYLINE HYDROCHLORIDE) [Concomitant]
  4. ROWASA [Concomitant]
  5. COLAZAL (BALSALAZIDE SODIUM) [Concomitant]

REACTIONS (1)
  - CHEST PAIN [None]
